FAERS Safety Report 14628266 (Version 1)
Quarter: 2018Q1

REPORT INFORMATION
  Report Type: Spontaneous
  Country: US (occurrence: US)
  Receive Date: 20180312
  Receipt Date: 20180312
  Transmission Date: 20180509
  Serious: No
  Sender: FDA-Public Use
  Company Number: US-ALLERGAN-1724621US

PATIENT
  Age: 74 Year
  Sex: Female

DRUGS (3)
  1. ADVAIR HFA [Concomitant]
     Active Substance: FLUTICASONE PROPIONATE\SALMETEROL XINAFOATE
     Indication: ASTHMA
     Dosage: 1 PUFF DAILY
     Route: 055
  2. ESTRACE [Suspect]
     Active Substance: ESTRADIOL
     Indication: ATROPHIC VULVOVAGINITIS
     Dosage: 2 MG 14 DAYS, 1 MG 14 DAYS
     Route: 067
     Dates: start: 20170607, end: 20170608
  3. LEVOTHYROXINE. [Concomitant]
     Active Substance: LEVOTHYROXINE
     Indication: HYPOTHYROIDISM
     Dosage: 112 ?G, UNK
     Route: 048

REACTIONS (11)
  - Insomnia [Not Recovered/Not Resolved]
  - Dysuria [Not Recovered/Not Resolved]
  - Abdominal pain [Not Recovered/Not Resolved]
  - Nausea [Recovered/Resolved]
  - Pelvic pain [Not Recovered/Not Resolved]
  - Myalgia [Recovered/Resolved]
  - Blood urine present [Not Recovered/Not Resolved]
  - Headache [Recovered/Resolved]
  - Vulvovaginal pain [Not Recovered/Not Resolved]
  - Malaise [Recovered/Resolved]
  - Limb discomfort [Recovered/Resolved]

NARRATIVE: CASE EVENT DATE: 20170607
